FAERS Safety Report 7343706-7 (Version None)
Quarter: 2011Q1

REPORT INFORMATION
  Report Type: 
  Country: None (occurrence: None)
  Receive Date: 20110310
  Receipt Date: 20101112
  Transmission Date: 20110831
  Serious: No
  Sender: FDA-Public Use
  Company Number: A0892176A

PATIENT
  Age: 53 Year
  Sex: Female

DRUGS (2)
  1. NICOTINE POLACRILEX [Concomitant]
  2. NICORETTE (MINT) [Suspect]
     Route: 048

REACTIONS (7)
  - PAIN IN EXTREMITY [None]
  - HYPOAESTHESIA [None]
  - INTENTIONAL DRUG MISUSE [None]
  - OROPHARYNGEAL PAIN [None]
  - PARAESTHESIA [None]
  - NICOTINE DEPENDENCE [None]
  - TOOTH DISORDER [None]
